FAERS Safety Report 14413362 (Version 1)
Quarter: 2018Q1

REPORT INFORMATION
  Report Type: Spontaneous
  Country: NL (occurrence: NL)
  Receive Date: 20180119
  Receipt Date: 20180119
  Transmission Date: 20180509
  Serious: Yes (Other)
  Sender: FDA-Public Use
  Company Number: NL-TEVA-2018-NL-846323

PATIENT
  Age: 51 Year
  Sex: Female

DRUGS (3)
  1. HALOPERIDOL TEVA 1 MG, TABLETTEN [Suspect]
     Active Substance: HALOPERIDOL
     Indication: PSYCHOTHERAPY
     Dosage: 2 MILLIGRAM DAILY; 2 TABLETS OF 1 MG IN THE EVENING
     Route: 048
     Dates: start: 20180105, end: 20180106
  2. HALOPERIDOL TEVA 1 MG, TABLETTEN [Suspect]
     Active Substance: HALOPERIDOL
     Dosage: BRAND NAME: HALOPERIDOL PCH 1 MG, TABLETTEN
     Route: 048
     Dates: start: 1994
  3. HALOPERIDOL TEVA 1 MG, TABLETTEN [Suspect]
     Active Substance: HALOPERIDOL
     Dosage: BRAND NAME: HALOPERIDOL PCH 1 MG, TABLETTEN
     Route: 048
     Dates: start: 20171206

REACTIONS (5)
  - Nausea [Recovered/Resolved]
  - Hypertension [Recovered/Resolved]
  - Abdominal pain upper [Recovered/Resolved]
  - Product substitution issue [Unknown]
  - Respiratory distress [Recovered/Resolved]

NARRATIVE: CASE EVENT DATE: 20180105
